FAERS Safety Report 7770629-1 (Version None)
Quarter: 2011Q3

REPORT INFORMATION
  Report Type: 
  Country: None (occurrence: None)
  Receive Date: 20110922
  Receipt Date: 20110921
  Transmission Date: 20111222
  Serious: Yes (Death, Hospitalization, Other)
  Sender: FDA-Public Use
  Company Number: PHHY2011AU42009

PATIENT
  Sex: Male

DRUGS (1)
  1. CLOZAPINE [Suspect]
     Dates: start: 20110409, end: 20110503

REACTIONS (4)
  - TROPONIN INCREASED [None]
  - TACHYCARDIA [None]
  - ECHOCARDIOGRAM ABNORMAL [None]
  - MYOCARDITIS [None]
